FAERS Safety Report 10254685 (Version 1)
Quarter: 2014Q2

REPORT INFORMATION
  Report Type: Spontaneous
  Country: IT (occurrence: IT)
  Receive Date: 20140624
  Receipt Date: 20140624
  Transmission Date: 20141212
  Serious: Yes (Other)
  Sender: FDA-Public Use
  Company Number: IT-AMGEN-ITASP2014046535

PATIENT
  Age: 73 Year
  Sex: Male

DRUGS (1)
  1. VECTIBIX [Suspect]
     Indication: COLON CANCER
     Dosage: 480 MG, CYCLICAL
     Route: 042
     Dates: start: 20140331, end: 20140516

REACTIONS (2)
  - Skin reaction [Recovering/Resolving]
  - Dermatitis acneiform [Recovering/Resolving]
